FAERS Safety Report 9665818 (Version 3)
Quarter: 2014Q2

REPORT INFORMATION
  Report Type: Spontaneous
  Country: GB (occurrence: GB)
  Receive Date: 20131104
  Receipt Date: 20140606
  Transmission Date: 20141212
  Serious: Yes (Other)
  Sender: FDA-Public Use
  Company Number: GB-ASTELLAS-2013EU009337

PATIENT
  Age: 64 Year
  Sex: Male

DRUGS (6)
  1. VESICARE [Suspect]
     Indication: MICTURITION URGENCY
     Route: 048
     Dates: start: 20130625
  2. VESICARE [Suspect]
     Dosage: 10 UNK, UNKNOWN FREQ.
     Route: 065
     Dates: start: 20131023
  3. TAMSULOSIN [Suspect]
     Indication: PROSTATIC DISORDER
     Route: 048
     Dates: start: 20130507
  4. FINASTERIDE [Concomitant]
     Indication: PROSTATIC DISORDER
     Route: 048
     Dates: start: 20130507
  5. SIMVASTATIN [Concomitant]
     Indication: BLOOD CHOLESTEROL
     Route: 048
     Dates: start: 20130715, end: 201309
  6. MADOPAR [Concomitant]
     Indication: PARKINSON^S DISEASE
     Route: 048
     Dates: start: 20130913

REACTIONS (2)
  - Hallucination [Recovered/Resolved]
  - Parkinson^s disease [Unknown]
